FAERS Safety Report 18041471 (Version 3)
Quarter: 2020Q3

REPORT INFORMATION
  Report Type: Report from Study
  Country: None (occurrence: US)
  Receive Date: 20200719
  Receipt Date: 20200908
  Transmission Date: 20201103
  Serious: Yes (Other)
  Sender: FDA-Public Use
  Company Number: US-ABBVIE-20K-163-3486870-00

PATIENT
  Age: 72 Year
  Sex: Female
  Weight: 83.99 kg

DRUGS (6)
  1. METHOTREXATE. [Concomitant]
     Active Substance: METHOTREXATE
     Indication: PRODUCT USED FOR UNKNOWN INDICATION
  2. RINVOQ [Suspect]
     Active Substance: UPADACITINIB
     Indication: RHEUMATOID ARTHRITIS
     Route: 048
     Dates: start: 202005, end: 202007
  3. EXFORGE [Concomitant]
     Active Substance: AMLODIPINE BESYLATE\VALSARTAN
     Indication: HYPERTENSION
  4. TRULICITY [Concomitant]
     Active Substance: DULAGLUTIDE
     Indication: DIABETES MELLITUS
     Route: 058
  5. PRAVASTATIN. [Concomitant]
     Active Substance: PRAVASTATIN
     Indication: PRODUCT USED FOR UNKNOWN INDICATION
  6. RINVOQ [Suspect]
     Active Substance: UPADACITINIB
     Route: 048
     Dates: start: 202007

REACTIONS (11)
  - Fatigue [Recovered/Resolved with Sequelae]
  - Glycosylated haemoglobin increased [Not Recovered/Not Resolved]
  - Ocular discomfort [Recovering/Resolving]
  - Off label use [Not Recovered/Not Resolved]
  - Product storage error [Unknown]
  - Head discomfort [Not Recovered/Not Resolved]
  - Loss of consciousness [Recovered/Resolved]
  - Heavy exposure to ultraviolet light [Unknown]
  - Headache [Recovered/Resolved]
  - Eye pain [Recovering/Resolving]
  - Strabismus [Recovering/Resolving]

NARRATIVE: CASE EVENT DATE: 2020
